FAERS Safety Report 17720753 (Version 1)
Quarter: 2020Q2

REPORT INFORMATION
  Report Type: Spontaneous
  Country: US (occurrence: US)
  Receive Date: 20200428
  Receipt Date: 20200428
  Transmission Date: 20200714
  Serious: No
  Sender: FDA-Public Use
  Company Number: US-ROCHE-2426859

PATIENT
  Sex: Female

DRUGS (5)
  1. TRAMADOL HYDROCHLORIDE. [Concomitant]
     Active Substance: TRAMADOL HYDROCHLORIDE
  2. AVASTIN [Suspect]
     Active Substance: BEVACIZUMAB
     Indication: ANAEMIA
     Route: 042
  3. IRON [Concomitant]
     Active Substance: IRON
  4. AZO [Concomitant]
     Active Substance: PHENAZOPYRIDINE HYDROCHLORIDE
     Route: 065
  5. LOSARTAN. [Concomitant]
     Active Substance: LOSARTAN
     Route: 065

REACTIONS (1)
  - Malaise [Unknown]
